FAERS Safety Report 25176169 (Version 4)
Quarter: 2025Q3

REPORT INFORMATION
  Report Type: Spontaneous
  Country: US (occurrence: US)
  Receive Date: 20250409
  Receipt Date: 20250816
  Transmission Date: 20251020
  Serious: No
  Sender: ALEXION PHARMACEUTICALS
  Company Number: US-AstraZeneca-CH-00844080AP

PATIENT
  Sex: Female

DRUGS (3)
  1. BYDUREON BCISE [Suspect]
     Active Substance: EXENATIDE
     Dosage: 2 MILLIGRAM, QW
     Route: 065
  2. BYDUREON BCISE [Suspect]
     Active Substance: EXENATIDE
  3. BYETTA [Suspect]
     Active Substance: EXENATIDE
     Route: 065

REACTIONS (7)
  - Device temperature issue [Unknown]
  - Injection site haemorrhage [Unknown]
  - Device issue [Unknown]
  - Incorrect dose administered [Unknown]
  - Memory impairment [Unknown]
  - Overdose [Unknown]
  - Medication error [Unknown]
